FAERS Safety Report 9358035 (Version 1)
Quarter: 2013Q2

REPORT INFORMATION
  Report Type: Spontaneous
  Country: US (occurrence: US)
  Receive Date: 20130620
  Receipt Date: 20130620
  Transmission Date: 20140414
  Serious: No
  Sender: FDA-Public Use
  Company Number: US-PFIZER INC-2013181040

PATIENT
  Sex: Female
  Weight: 70.3 kg

DRUGS (4)
  1. LEVOXYL [Suspect]
     Indication: THYROID DISORDER
     Dosage: 50 UG, 1X/DAY
     Dates: start: 2003
  2. LEVOXYL [Suspect]
     Dosage: 50 UG, UNK
  3. LEVOXYL [Suspect]
     Dosage: 75 UG, UNK
  4. LEVOXYL [Suspect]
     Dosage: 88 UG, UNK

REACTIONS (2)
  - Drug ineffective [Unknown]
  - Thyroid function test abnormal [Unknown]
